FAERS Safety Report 11874237 (Version 2)
Quarter: 2018Q3

REPORT INFORMATION
  Report Type: Report from Study
  Country: KR (occurrence: KR)
  Receive Date: 20151229
  Receipt Date: 20180704
  Transmission Date: 20181010
  Serious: Yes (Hospitalization)
  Sender: FDA-Public Use
  Company Number: KR-ROCHE-1685338

PATIENT
  Sex: Female

DRUGS (9)
  1. METHOTREXATE. [Concomitant]
     Active Substance: METHOTREXATE
     Indication: RHEUMATOID ARTHRITIS
     Route: 048
     Dates: start: 20120522
  2. SOLONDO [Concomitant]
     Active Substance: PREDNISOLONE
     Indication: RHEUMATOID ARTHRITIS
     Route: 048
     Dates: start: 20130723
  3. MOTILITONE [Concomitant]
     Active Substance: HERBALS
     Route: 065
     Dates: start: 20140205, end: 20140719
  4. TOCILIZUMAB. [Suspect]
     Active Substance: TOCILIZUMAB
     Indication: RHEUMATOID ARTHRITIS
     Dosage: SUBSEQUENTLY, SHE RECEIVED THERAPY OF TOCILIZUMAB 480 MG ON 10/APR/2014 (2ND VISIT), 07/MAY/2014 (3R
     Route: 042
     Dates: start: 20140205
  5. CODENAL (SOUTH KOREA) [Concomitant]
     Indication: COUGH
     Route: 048
     Dates: start: 20140312, end: 20140410
  6. LANSTON [Concomitant]
     Active Substance: LANSOPRAZOLE
     Route: 065
     Dates: start: 20130205
  7. FOLIC ACID. [Concomitant]
     Active Substance: FOLIC ACID
     Route: 048
     Dates: start: 20120925
  8. METHYSOL [Concomitant]
     Indication: RHEUMATOID ARTHRITIS
     Route: 042
     Dates: start: 20140312, end: 20140312
  9. CELEBREX [Concomitant]
     Active Substance: CELECOXIB
     Indication: RHEUMATOID ARTHRITIS
     Route: 065
     Dates: start: 20130820

REACTIONS (1)
  - Arthritis [Recovered/Resolved]

NARRATIVE: CASE EVENT DATE: 2015
